FAERS Safety Report 25538990 (Version 2)
Quarter: 2025Q3

REPORT INFORMATION
  Report Type: Spontaneous
  Country: CN (occurrence: CN)
  Receive Date: 20250710
  Receipt Date: 20250716
  Transmission Date: 20251020
  Serious: Yes (Hospitalization, Other)
  Sender: NOVARTIS
  Company Number: CN-002147023-NVSC2025CN106978

PATIENT
  Age: 62 Year
  Sex: Male
  Weight: 54 kg

DRUGS (4)
  1. EVEROLIMUS [Suspect]
     Active Substance: EVEROLIMUS
     Indication: Targeted cancer therapy
     Dosage: 5 MG, QD
     Route: 048
     Dates: start: 20250603, end: 20250630
  2. CATEQUENTINIB DIHYDROCHLORIDE [Suspect]
     Active Substance: CATEQUENTINIB DIHYDROCHLORIDE
     Indication: Targeted cancer therapy
     Dosage: 10 MG, QD, D1-14
     Route: 048
     Dates: start: 20250603, end: 20250617
  3. CISPLATIN [Suspect]
     Active Substance: CISPLATIN
     Indication: Chemotherapy
     Dosage: 30 MG, BID, D1
     Route: 034
     Dates: start: 20250603, end: 20250605
  4. SODIUM CHLORIDE [Concomitant]
     Active Substance: SODIUM CHLORIDE
     Indication: Ill-defined disorder
     Dosage: 20 ML, BID
     Route: 034
     Dates: start: 20250603, end: 20250605

REACTIONS (4)
  - Myelosuppression [Not Recovered/Not Resolved]
  - Heart rate increased [Unknown]
  - Respiratory rate decreased [Unknown]
  - Blood pressure decreased [Unknown]

NARRATIVE: CASE EVENT DATE: 20250625
